FAERS Safety Report 5167504-8 (Version None)
Quarter: 2006Q4

REPORT INFORMATION
  Report Type: 
  Country: None (occurrence: None)
  Receive Date: 20061130
  Receipt Date: 20061110
  Transmission Date: 20070319
  Serious: Yes (Other)
  Sender: FDA-Public Use
  Company Number: 2006SP006424

PATIENT
  Age: 37 Year
  Sex: Female

DRUGS (2)
  1. INTERFERON ALFA (MANUFACTURER UNKNOWN) (INTERFERON ALFA-2B) [Suspect]
     Indication: HEPATITIS C
     Dosage: 80 MCG; QD; SC
     Route: 058
  2. RIBAVIRIN [Suspect]
     Indication: HEPATITIS C
     Dosage: 800 MG; BID

REACTIONS (10)
  - ALVEOLITIS FIBROSING [None]
  - ANAEMIA HAEMOLYTIC AUTOIMMUNE [None]
  - CD4 LYMPHOCYTES DECREASED [None]
  - HYPERGLYCAEMIA [None]
  - IDIOPATHIC THROMBOCYTOPENIC PURPURA [None]
  - MOUTH ULCERATION [None]
  - PNEUMONITIS [None]
  - REFUSAL OF TREATMENT BY PATIENT [None]
  - SYSTEMIC LUPUS ERYTHEMATOSUS [None]
  - WEIGHT DECREASED [None]
